FAERS Safety Report 6826997-8 (Version None)
Quarter: 2010Q3

REPORT INFORMATION
  Report Type: 
  Country: None (occurrence: None)
  Receive Date: 20100709
  Receipt Date: 20100628
  Transmission Date: 20110219
  Serious: Yes (Other)
  Sender: FDA-Public Use
  Company Number: BR-PFIZER INC-2010080288

PATIENT
  Age: 63 Year
  Sex: Female
  Weight: 101 kg

DRUGS (11)
  1. NEURONTIN [Suspect]
     Indication: BACK PAIN
     Dosage: 600 MG, UNK
     Route: 048
     Dates: start: 20080101, end: 20100101
  2. LYRICA [Suspect]
     Indication: BACK PAIN
     Dosage: 150 MG, 2X/DAY, EVERY TWELVE HOURS
     Route: 048
     Dates: start: 20100501
  3. TRAMAL [Suspect]
     Indication: BACK PAIN
     Dosage: 50 MG, EVERY 8 HOURS
     Route: 048
     Dates: start: 20100601
  4. XALATAN [Concomitant]
     Indication: GLAUCOMA
     Dosage: UNK
     Dates: start: 20000101
  5. SIMVASTATIN [Concomitant]
     Indication: BLOOD CHOLESTEROL INCREASED
     Dosage: UNK
  6. METFORMIN HYDROCHLORIDE [Concomitant]
     Indication: DIABETES MELLITUS
     Dosage: UNK
  7. INSULIN [Concomitant]
     Indication: DIABETES MELLITUS
     Dosage: UNK
  8. NATRILIX - SLOW RELEASE [Concomitant]
     Indication: HYPERTENSION
     Dosage: UNK
  9. ACETYLSALICYLIC ACID [Concomitant]
     Dosage: UNK
  10. MICARDIS [Concomitant]
     Dosage: 80 MG, UNK
  11. DIOSMIN/HESPERIDIN [Concomitant]
     Dosage: UNK

REACTIONS (5)
  - CONFUSIONAL STATE [None]
  - DISORIENTATION [None]
  - DRUG INEFFECTIVE FOR UNAPPROVED INDICATION [None]
  - HYPERSOMNIA [None]
  - PAIN [None]
